FAERS Safety Report 21093330 (Version 1)
Quarter: 2022Q3

REPORT INFORMATION
  Report Type: Spontaneous
  Country: CN (occurrence: CN)
  Receive Date: 20220718
  Receipt Date: 20220718
  Transmission Date: 20221027
  Serious: Yes (Hospitalization, Other)
  Sender: FDA-Public Use
  Company Number: CN-AstraZeneca-2022A248350

PATIENT

DRUGS (2)
  1. GOSERELIN [Suspect]
     Active Substance: GOSERELIN
     Indication: Prostate cancer
     Dosage: 10.8MG ONCE/SINGLE ADMINISTRATION
     Route: 058
     Dates: start: 20220620, end: 20220620
  2. ZOLADEX [Suspect]
     Active Substance: GOSERELIN ACETATE
     Indication: Prostate cancer
     Dosage: UNK
     Route: 065

REACTIONS (8)
  - Rheumatic heart disease [Unknown]
  - Amaurosis fugax [Unknown]
  - Pyrexia [Unknown]
  - Hypertension [Unknown]
  - Nausea [Recovering/Resolving]
  - Blood glucose increased [Unknown]
  - Muscular weakness [Unknown]
  - Dizziness [Recovering/Resolving]

NARRATIVE: CASE EVENT DATE: 20220621
